FAERS Safety Report 6317445-5 (Version None)
Quarter: 2009Q3

REPORT INFORMATION
  Report Type: 
  Country: None (occurrence: None)
  Receive Date: 20090821
  Receipt Date: 20090811
  Transmission Date: 20100115
  Serious: Yes (Other)
  Sender: FDA-Public Use
  Company Number: CA-JNJFOC-20090803705

PATIENT
  Sex: Female
  Weight: 103 kg

DRUGS (7)
  1. REMICADE [Suspect]
     Route: 042
  2. REMICADE [Suspect]
     Indication: DRUG USE FOR UNKNOWN INDICATION
     Route: 042
  3. PENTASA [Concomitant]
  4. PREDNISONE [Concomitant]
  5. FOLIC ACID [Concomitant]
  6. METHOTREXATE [Concomitant]
  7. FLOVENT [Concomitant]
     Dosage: DOSE 125 MCG

REACTIONS (1)
  - LIGAMENT INJURY [None]
